FAERS Safety Report 4600209-8 (Version None)
Quarter: 2005Q1

REPORT INFORMATION
  Report Type: 
  Country: None (occurrence: None)
  Receive Date: 20050307
  Receipt Date: 20050131
  Transmission Date: 20050727
  Serious: Yes (Hospitalization, Other)
  Sender: FDA-Public Use
  Company Number: PHNU2005DE00749

PATIENT
  Sex: Male

DRUGS (4)
  1. LOCOL [Suspect]
     Indication: MIXED HYPERLIPIDAEMIA
     Dosage: 80 MG, QD
     Route: 048
     Dates: start: 20040101, end: 20050128
  2. FENOFIBRATE [Suspect]
     Indication: MIXED HYPERLIPIDAEMIA
     Dosage: 1 DF, BID
     Dates: start: 20040101, end: 20050128
  3. NIASPAN [Suspect]
     Indication: MIXED HYPERLIPIDAEMIA
     Dosage: UNK, UNK
     Dates: start: 20040101, end: 20050128
  4. ANAESTHETICS [Suspect]
     Dates: start: 20050101, end: 20050101

REACTIONS (7)
  - BLOOD CREATINE PHOSPHOKINASE INCREASED [None]
  - BRAIN OPERATION [None]
  - DRUG INTERACTION [None]
  - MYOPATHY [None]
  - PERIPHERAL NERVE OPERATION [None]
  - POST PROCEDURAL COMPLICATION [None]
  - RHABDOMYOLYSIS [None]
